FAERS Safety Report 21193408 (Version 1)
Quarter: 2022Q3

REPORT INFORMATION
  Report Type: Report from Study
  Country: US (occurrence: US)
  Receive Date: 20220810
  Receipt Date: 20220810
  Transmission Date: 20221027
  Serious: Yes (Other)
  Sender: FDA-Public Use
  Company Number: US-BRISTOL-MYERS SQUIBB COMPANY-2022-083679

PATIENT
  Age: 59 Year
  Sex: Male

DRUGS (12)
  1. REVLIMID [Suspect]
     Active Substance: LENALIDOMIDE
     Indication: Plasma cell myeloma
     Dosage: DAILY FOR DAY 1 THROUGH EVERY 21 DAYS CYCLE
     Route: 048
     Dates: start: 20210512
  2. MIRALAX [Concomitant]
     Active Substance: POLYETHYLENE GLYCOL 3350
     Indication: Product used for unknown indication
     Route: 065
  3. TYLENOL [Concomitant]
     Active Substance: ACETAMINOPHEN
     Indication: Product used for unknown indication
     Route: 065
  4. XGEVA [Concomitant]
     Active Substance: DENOSUMAB
     Indication: Product used for unknown indication
     Route: 065
  5. COLACE [Concomitant]
     Active Substance: DOCUSATE SODIUM
     Indication: Product used for unknown indication
     Route: 065
  6. ALLEGRA F [Concomitant]
     Indication: Product used for unknown indication
     Route: 065
  7. GLYMESASON [DEXAMETHASONE] [Concomitant]
     Indication: Product used for unknown indication
     Route: 065
  8. AZELAIC ACID [Concomitant]
     Active Substance: AZELAIC ACID
     Indication: Product used for unknown indication
     Route: 065
  9. CALCIUM T.O. [Concomitant]
     Indication: Product used for unknown indication
     Route: 065
  10. VELCADE [Concomitant]
     Active Substance: BORTEZOMIB
     Indication: Product used for unknown indication
     Route: 065
  11. PROLOL [METOPROLOL TARTRATE] [Concomitant]
     Indication: Product used for unknown indication
     Route: 065
  12. TRIAMCINOLONA [TRIAMCINOLONE ACETONIDE] [Concomitant]
     Indication: Product used for unknown indication
     Route: 065

REACTIONS (2)
  - Diarrhoea [Unknown]
  - Compression fracture [Unknown]
